FAERS Safety Report 7376876-5 (Version None)
Quarter: 2011Q1

REPORT INFORMATION
  Report Type: 
  Country: None (occurrence: None)
  Receive Date: 20110327
  Receipt Date: 20110314
  Transmission Date: 20110831
  Serious: Yes (Death, Hospitalization)
  Sender: FDA-Public Use
  Company Number: US-CELGENEUS-163-21880-11012979

PATIENT
  Sex: Female
  Weight: 50.1 kg

DRUGS (54)
  1. VIDAZA [Suspect]
     Dosage: 75 MILLIGRAM/SQ. METER
     Route: 051
     Dates: start: 20100526, end: 20100601
  2. KLONAZEPAM [Concomitant]
     Dosage: .5 MILLIGRAM
     Route: 048
  3. LEVOFLOXACIN [Concomitant]
     Dosage: 750 MILLIGRAM
     Route: 051
     Dates: start: 20110122
  4. DUONEB [Concomitant]
     Dosage: 2 PUFFS
     Route: 055
  5. CYTARABINE [Concomitant]
     Dosage: 200 MILLIGRAM/SQ. METER
     Route: 051
     Dates: start: 20110101
  6. RED BLOOD CELLS [Concomitant]
     Dosage: 2 UNITS
     Route: 051
  7. AZITHROMYCIN [Concomitant]
     Dosage: 500 MILLIGRAM
     Route: 048
  8. PROZAC [Concomitant]
     Dosage: 10 MILLIGRAM
     Route: 048
  9. HYDROMORPHONE [Concomitant]
     Dosage: 2MG/ML, 0.5 MG
     Route: 051
     Dates: start: 20110101
  10. DUONEB [Concomitant]
     Dosage: 3 MILLILITER
     Route: 055
     Dates: start: 20110101
  11. ERGOCALCIFEROL [Concomitant]
     Dosage: 50000UNITS
     Route: 048
     Dates: start: 20110101
  12. ONDANSETRON [Concomitant]
     Dosage: 8 MILLIGRAM
     Route: 048
     Dates: start: 20110101
  13. LORAZEPAM [Concomitant]
     Dosage: .5 MILLIGRAM
     Route: 048
     Dates: start: 20110101
  14. LORAZEPAM [Concomitant]
     Dosage: .5 MILLIGRAM
     Route: 051
     Dates: start: 20110101
  15. METOCLOPRAMIDE [Concomitant]
     Dosage: 10-20MG
     Route: 048
     Dates: start: 20110101
  16. OXYCODONE/ACETAMINOPHEN [Concomitant]
     Dosage: 1 TABLET
     Route: 048
  17. TRAZODONE HCL [Concomitant]
     Dosage: 200 MILLIGRAM
     Route: 048
  18. MIRTAZAPINE [Concomitant]
     Dosage: 22.5 MILLIGRAM
     Route: 048
  19. SENNA [Concomitant]
     Dosage: 2 TABLET
     Route: 048
     Dates: start: 20110101
  20. PROCHLORPERAZINE [Concomitant]
     Dosage: 10 MILLIGRAM
     Route: 051
     Dates: start: 20110101
  21. POSACONAZOLE [Concomitant]
     Dosage: 200 MILLIGRAM
     Route: 048
  22. ETHAMBUTOL HYDROCHLORIDE [Concomitant]
     Dosage: 400 MILLIGRAM
     Route: 048
  23. PROZAC [Concomitant]
     Indication: DEPRESSION
     Dosage: 20 MILLIGRAM
     Route: 048
  24. VORICONAZOLE [Concomitant]
     Dosage: 250 MILLIGRAM
     Route: 048
  25. TRAZODONE HCL [Concomitant]
     Dosage: 100 MILLIGRAM
     Route: 048
     Dates: start: 20110101
  26. ACETAMINOPHEN AND HYDROCODONE BITARTRATE [Concomitant]
     Dosage: 5-500MG, 1-2 TABLETS
     Route: 048
  27. MIRTAZAPINE [Concomitant]
     Indication: DEPRESSION
     Dosage: 15 MILLIGRAM
     Route: 048
     Dates: start: 20110101
  28. MODAFINIL [Concomitant]
     Route: 048
     Dates: start: 20110101
  29. METOCLOPRAMIDE [Concomitant]
     Dosage: 10-20MG
     Route: 051
     Dates: start: 20110101
  30. HYDROMORPHONE [Concomitant]
     Dosage: 0.5-1MG
     Route: 051
  31. PANTOPRAZOLE [Concomitant]
     Dosage: 40 MILLIGRAM
     Route: 048
  32. MYCELEX [Concomitant]
     Dosage: 10 MILLIGRAM
     Route: 048
  33. MORPHINE [Concomitant]
     Dosage: 2 MILLIGRAM
     Route: 051
  34. DECADRON [Concomitant]
     Dosage: 10 MILLIGRAM
     Route: 051
     Dates: start: 20110101
  35. CEPACOL [Concomitant]
     Dosage: 1 LOZENGE
     Route: 048
  36. MAGNESIUM [Concomitant]
     Dosage: 84 MILLIGRAM
     Route: 048
  37. RIFABUTIN [Concomitant]
     Dosage: 150 MILLIGRAM
     Route: 048
  38. NEURONTIN [Concomitant]
     Dosage: 600 MILLIGRAM
     Route: 048
  39. LEVOFLOXACIN [Concomitant]
     Dosage: 750 MILLIGRAM
     Route: 048
  40. ACETAMINOPHEN [Concomitant]
     Indication: HEADACHE
     Dosage: 650 MILLIGRAM
     Route: 048
     Dates: start: 20110101
  41. ACETAMINOPHEN AND HYDROCODONE BITARTRATE [Concomitant]
     Dosage: 5-500MG, 1-2 TABLETS
     Route: 048
     Dates: start: 20110101
  42. CALCIUM GLUCONATE [Concomitant]
     Dosage: 4.6-9.2MEQ
  43. REVLIMID [Suspect]
     Dosage: 50 MILLIGRAM
     Route: 048
     Dates: start: 20101229, end: 20110118
  44. VIDAZA [Suspect]
     Dosage: 75 MILLIGRAM/SQ. METER
     Route: 051
     Dates: start: 20101222, end: 20101228
  45. PLATELETS [Concomitant]
     Dosage: 1 UNIT
     Route: 051
  46. CALCIUM CARBONATE -VITAMIN D [Concomitant]
     Dosage: 500-200MG, 2 TABLETS
     Route: 048
  47. LIDODERM [Concomitant]
     Dosage: 1 -2 PATCHES
     Route: 062
     Dates: start: 20110101
  48. ITRACONAZOLE [Concomitant]
     Dosage: 200 MILLIGRAM
     Route: 048
     Dates: start: 20110101
  49. DOCUSATE [Concomitant]
     Route: 048
     Dates: start: 20110101
  50. PROCHLORPERAZINE [Concomitant]
     Dosage: 10 MILLIGRAM
     Route: 048
     Dates: start: 20110101
  51. REVLIMID [Suspect]
     Dosage: 50 MILLIGRAM
     Route: 048
     Dates: start: 20100602, end: 20100622
  52. VORICONAZOLE [Concomitant]
     Dosage: 300 MILLIGRAM
     Route: 048
  53. TRAMADOL [Concomitant]
     Dosage: 25 MILLIGRAM
     Route: 048
     Dates: start: 20110101
  54. ENALAPRIL MALEATE [Concomitant]
     Dosage: 2.5 MILLIGRAM
     Route: 048

REACTIONS (4)
  - ACUTE MYELOID LEUKAEMIA [None]
  - SEPSIS [None]
  - CHILLS [None]
  - CIRCULATORY COLLAPSE [None]
